FAERS Safety Report 9015261 (Version 1)
Quarter: 2013Q1

REPORT INFORMATION
  Report Type: Spontaneous
  Country: US (occurrence: None)
  Receive Date: 20130103
  Receipt Date: 20130103
  Transmission Date: 20140127
  Serious: Yes (Hospitalization)
  Sender: FDA-Public Use
  Company Number: 2012-05264

PATIENT
  Age: 40 Year
  Sex: Female

DRUGS (2)
  1. CITALOPRAM HYDROBROMIDE [Suspect]
     Indication: DEPRESSION
  2. FLUOXETINE HYDROCHLORIDE (UNKNOWN) (FLUOXETINE HYDROCHLORIDE) UNK, UNKUNK [Suspect]
     Indication: DEPRESSION

REACTIONS (9)
  - Electrocardiogram QT prolonged [None]
  - Torsade de pointes [None]
  - Depression [None]
  - Palpitations [None]
  - Dizziness [None]
  - Syncope [None]
  - Fall [None]
  - Laceration [None]
  - Ventricular hypertrophy [None]
